FAERS Safety Report 8221843-2 (Version None)
Quarter: 2012Q1

REPORT INFORMATION
  Report Type: 
  Country: None (occurrence: None)
  Receive Date: 20120320
  Receipt Date: 20120309
  Transmission Date: 20120608
  Serious: Yes (Death, Hospitalization)
  Sender: FDA-Public Use
  Company Number: CH-FRI-1000028809

PATIENT
  Sex: Male

DRUGS (6)
  1. ASPIRIN [Suspect]
     Dosage: 100 MG
     Dates: end: 20120107
  2. GLUCOPHAGE [Concomitant]
     Dosage: 1500 MG
  3. ZOCOR [Concomitant]
     Dosage: 5 MG
  4. CITALOPRAM HYDROBROMIDE [Suspect]
     Dosage: 20 MG
     Route: 048
     Dates: end: 20120107
  5. SINTROM [Suspect]
     Dates: end: 20120107
  6. MEMANTINE HYDROCHLORIDE [Concomitant]
     Dosage: 1 DF

REACTIONS (1)
  - CEREBRAL HAEMORRHAGE [None]
